FAERS Safety Report 25390060 (Version 2)
Quarter: 2025Q3

REPORT INFORMATION
  Report Type: Report from Study
  Country: CA (occurrence: CA)
  Receive Date: 20250603
  Receipt Date: 20250704
  Transmission Date: 20251020
  Serious: Yes (Death, Hospitalization)
  Sender: ABBVIE
  Company Number: CA-ABBVIE-6309567

PATIENT
  Age: 77 Year
  Sex: Male

DRUGS (1)
  1. LUPRON [Suspect]
     Active Substance: LEUPROLIDE ACETATE
     Indication: Prostate cancer
     Dosage: FORM STRENGTH 30 MG
     Route: 030
     Dates: start: 20210520

REACTIONS (2)
  - Death [Fatal]
  - Fall [Unknown]

NARRATIVE: CASE EVENT DATE: 20250525
